FAERS Safety Report 6390164-5 (Version None)
Quarter: 2009Q4

REPORT INFORMATION
  Report Type: 
  Country: None (occurrence: None)
  Receive Date: 20091005
  Receipt Date: 20091005
  Transmission Date: 20100525
  Serious: No
  Sender: FDA-Public Use
  Company Number: None

PATIENT
  Age: 67 Year
  Sex: Male

DRUGS (1)
  1. LISINOPRIL [Suspect]
     Indication: HYPERTENSION
     Dosage: 10 MG EVERY DAY PO
     Route: 048
     Dates: start: 20010418, end: 20090719

REACTIONS (4)
  - ANGIOEDEMA [None]
  - POST PROCEDURAL COMPLICATION [None]
  - RASH [None]
  - SUPERIOR VENA CAVAL OCCLUSION [None]
